FAERS Safety Report 5811134-9 (Version None)
Quarter: 2008Q3

REPORT INFORMATION
  Report Type: 
  Country: None (occurrence: None)
  Receive Date: 20080716
  Receipt Date: 20080707
  Transmission Date: 20090109
  Serious: Yes (Death, Hospitalization)
  Sender: FDA-Public Use
  Company Number: PHBS2008US05040

PATIENT
  Age: 80 Day
  Sex: Male
  Weight: 1.775 kg

DRUGS (19)
  1. TOBRAMYCIN [Suspect]
     Indication: INFECTION
     Dosage: 80 MG, BID
  2. TOBRAMYCIN [Suspect]
     Dosage: 300 MG, QD
  3. VANCOMYCIN HCL [Concomitant]
  4. OXACILLIN [Concomitant]
  5. CEFEPIME [Concomitant]
  6. ALBUTEROL [Concomitant]
  7. IPRATROPIUM BROMIDE [Concomitant]
  8. MIDAZOLAM HCL [Concomitant]
  9. MORPHINE [Concomitant]
  10. AMOXICILLIN [Concomitant]
  11. CALCITRIOL [Concomitant]
  12. CHLORAL HYDRATE [Concomitant]
  13. CHLOROTHIAZIDE [Concomitant]
  14. METOCLOPRAMIDE [Concomitant]
  15. RANITIDINE HCL [Concomitant]
  16. ACETAMINOPHEN [Concomitant]
  17. SPIRONOLACTONE [Concomitant]
  18. DIPHENHYDRAMINE HCL [Concomitant]
  19. FUROSEMIDE [Concomitant]

REACTIONS (5)
  - BLOOD CREATININE DECREASED [None]
  - BLOOD UREA DECREASED [None]
  - DRUG RESISTANCE [None]
  - PNEUMONIA [None]
  - SEPSIS [None]
